FAERS Safety Report 23307228 (Version 2)
Quarter: 2024Q1

REPORT INFORMATION
  Report Type: Spontaneous
  Country: US (occurrence: US)
  Receive Date: 20231218
  Receipt Date: 20240112
  Transmission Date: 20240409
  Serious: Yes (Death, Life-Threatening, Hospitalization, Other)
  Sender: FDA-Public Use
  Company Number: US-MLMSERVICE-20231130-4698587-1

PATIENT
  Age: 12 Year
  Sex: Male

DRUGS (1)
  1. METHOTREXATE [Suspect]
     Active Substance: METHOTREXATE
     Indication: B-cell type acute leukaemia
     Dosage: UNK HIGH DOSE
     Route: 065

REACTIONS (11)
  - Acute kidney injury [Fatal]
  - Coagulopathy [Fatal]
  - Condition aggravated [Fatal]
  - Acute hepatic failure [Fatal]
  - Septic shock [Fatal]
  - Vasoplegia syndrome [Fatal]
  - Hepatorenal syndrome [Fatal]
  - Hepatic fibrosis [Fatal]
  - Hepatic steatosis [Fatal]
  - Acute respiratory distress syndrome [Fatal]
  - Toxicity to various agents [Recovered/Resolved]
